FAERS Safety Report 9784350 (Version 1)
Quarter: 2013Q4

REPORT INFORMATION
  Report Type: Spontaneous
  Country: US (occurrence: US)
  Receive Date: 20131226
  Receipt Date: 20131226
  Transmission Date: 20140711
  Serious: No
  Sender: FDA-Public Use
  Company Number: US-BIOGENIDEC-2013BI121276

PATIENT
  Age: 53 Year
  Sex: Male

DRUGS (23)
  1. TECFIDERA [Suspect]
     Indication: MULTIPLE SCLEROSIS
     Route: 048
     Dates: start: 201308, end: 201311
  2. DEPO-TESTOSTERONE [Concomitant]
  3. LITHIUM [Concomitant]
  4. VOLTAREN [Concomitant]
  5. NASONEX [Concomitant]
  6. OXYBUTYNIN [Concomitant]
  7. CARBAMAZEPINE [Concomitant]
  8. MELOXICAM [Concomitant]
  9. CICLOPIROX [Concomitant]
  10. BACLOFEN [Concomitant]
  11. NEXIUM [Concomitant]
  12. GREEN TEA [Concomitant]
  13. CRANBERRY [Concomitant]
  14. BETA-CAROTENE [Concomitant]
  15. CALCIUM [Concomitant]
  16. MAGNESIUM [Concomitant]
  17. ZINC [Concomitant]
  18. VITAMIN D [Concomitant]
  19. NORCO [Concomitant]
  20. GLUCOSAMINE [Concomitant]
  21. FISH OIL [Concomitant]
  22. VITAMIN C [Concomitant]
  23. LEVOXYL [Concomitant]

REACTIONS (3)
  - Muscle spasticity [Unknown]
  - Headache [Unknown]
  - Vision blurred [Unknown]
